FAERS Safety Report 8921283 (Version 3)
Quarter: 2013Q1

REPORT INFORMATION
  Report Type: Spontaneous
  Country: US (occurrence: US)
  Receive Date: 20121122
  Receipt Date: 20130121
  Transmission Date: 20140127
  Serious: Yes (Hospitalization)
  Sender: FDA-Public Use
  Company Number: US-BAXTER-2012BAX024417

PATIENT
  Sex: Female
  Weight: 85.45 kg

DRUGS (9)
  1. GAMMAGARD LIQUID [Suspect]
     Indication: MULTIFOCAL MOTOR NEUROPATHY
     Route: 042
     Dates: start: 201201
  2. GAMMAGARD LIQUID [Suspect]
     Route: 042
     Dates: start: 20110508, end: 20110508
  3. GAMMAGARD LIQUID [Suspect]
     Route: 042
     Dates: start: 20110320, end: 20110320
  4. PREMPRO [Suspect]
     Indication: MENOPAUSAL SYMPTOMS
     Dosage: 0.625MG/2.5MG
     Dates: end: 201106
  5. ALLEGRA [Concomitant]
     Indication: PRODUCT USED FOR UNKNOWN INDICATION
     Route: 065
  6. VISTARIL [Concomitant]
     Indication: ANXIETY
     Route: 065
  7. VISTARIL [Concomitant]
     Indication: SEDATION
  8. CALCIUM [Concomitant]
     Indication: PRODUCT USED FOR UNKNOWN INDICATION
     Route: 065
  9. MULTI-VITAMIN [Concomitant]
     Indication: PRODUCT USED FOR UNKNOWN INDICATION
     Route: 065

REACTIONS (3)
  - Superior vena cava syndrome [Recovered/Resolved]
  - Thrombosis [Recovered/Resolved]
  - Sinus disorder [Unknown]
